FAERS Safety Report 8896597 (Version 1)
Quarter: 2012Q4

REPORT INFORMATION
  Report Type: 
  Country: US (occurrence: US)
  Receive Date: 20121108
  Receipt Date: 20121108
  Transmission Date: 20130627
  Serious: No
  Sender: FDA-Public Use
  Company Number: US-ASTRAZENECA-2012SE82143

PATIENT
  Sex: Female

DRUGS (4)
  1. NEXIUM [Suspect]
     Route: 048
  2. PRILOSEC OTC [Suspect]
     Route: 048
  3. ZANTAC [Concomitant]
  4. PEPTOBISMOL [Concomitant]

REACTIONS (6)
  - Insomnia [Unknown]
  - Chest pain [Unknown]
  - Weight decreased [Unknown]
  - Dyspepsia [Unknown]
  - Drug dose omission [Unknown]
  - Drug effect incomplete [Unknown]
